FAERS Safety Report 8345942-X (Version None)
Quarter: 2012Q2

REPORT INFORMATION
  Report Type: 
  Country: None (occurrence: None)
  Receive Date: 20120507
  Receipt Date: 20120420
  Transmission Date: 20120825
  Serious: Yes (Other)
  Sender: FDA-Public Use
  Company Number: 2012-00682

PATIENT
  Sex: Female
  Weight: 90.7194 kg

DRUGS (1)
  1. SERTRALINE HYDROCHLORIDE [Suspect]
     Indication: POST-TRAUMATIC STRESS DISORDER
     Dosage: 200 MG (200 MG, 1 IN 1 D)

REACTIONS (11)
  - CHILLS [None]
  - HYPERHIDROSIS [None]
  - FORMICATION [None]
  - VITAMIN B COMPLEX DEFICIENCY [None]
  - ANAEMIA [None]
  - BINGE EATING [None]
  - BODY TEMPERATURE INCREASED [None]
  - CRYING [None]
  - DIZZINESS [None]
  - NIGHTMARE [None]
  - ABDOMINAL PAIN UPPER [None]
